FAERS Safety Report 8132929-5 (Version None)
Quarter: 2012Q1

REPORT INFORMATION
  Report Type: 
  Country: None (occurrence: None)
  Receive Date: 20120103
  Receipt Date: 20110923
  Transmission Date: 20120608
  Serious: No
  Sender: FDA-Public Use
  Company Number: AE-2011-001745

PATIENT
  Sex: Female
  Weight: 77.1115 kg

DRUGS (4)
  1. RIBAVIRIN [Concomitant]
  2. WELLBUTRIN [Concomitant]
  3. INCIVEK [Suspect]
     Dates: start: 20110909
  4. PEGINTERFERON (PEGINTERFERON ALFA-2A) [Concomitant]

REACTIONS (2)
  - DEPRESSION [None]
  - NAUSEA [None]
